FAERS Safety Report 8579802-6 (Version None)
Quarter: 2012Q3

REPORT INFORMATION
  Report Type: 
  Country: None (occurrence: None)
  Receive Date: 20120808
  Receipt Date: 20120724
  Transmission Date: 20120928
  Serious: Yes (Other)
  Sender: FDA-Public Use
  Company Number: GB-WATSON-2012-13246

PATIENT
  Sex: Male

DRUGS (4)
  1. FEXOFENADINE [Concomitant]
     Indication: SEASONAL ALLERGY
     Dosage: UNK
     Route: 048
  2. MONTELUKAST [Concomitant]
     Indication: SEASONAL ALLERGY
     Dosage: 10 MG, UNKNOWN
     Route: 048
  3. ROPINIROLE HYDROCHLORIDE [Suspect]
     Indication: RESTLESS LEGS SYNDROME
     Dosage: 640 MCG, UNKNOWN
     Route: 048
     Dates: start: 20100101, end: 20120706
  4. FLUOXETINE HCL [Concomitant]
     Indication: DEPRESSION
     Dosage: UNK
     Route: 048
     Dates: end: 20120201

REACTIONS (3)
  - HYPERSEXUALITY [None]
  - SPEECH DISORDER [None]
  - COMPULSIONS [None]
